FAERS Safety Report 21566100 (Version 1)
Quarter: 2022Q4

REPORT INFORMATION
  Report Type: Spontaneous
  Country: US (occurrence: US)
  Receive Date: 20221108
  Receipt Date: 20221108
  Transmission Date: 20230113
  Serious: No
  Sender: FDA-Public Use
  Company Number: US-BRISTOL-MYERS SQUIBB COMPANY-2022-133821

PATIENT
  Age: 78 Year
  Sex: Female
  Weight: 54.6 kg

DRUGS (1)
  1. REVLIMID [Suspect]
     Active Substance: LENALIDOMIDE
     Indication: Non-Hodgkin^s lymphoma
     Dosage: DOSE : 2.5 MG;     FREQ : DAILY
     Route: 048
     Dates: start: 20191125

REACTIONS (1)
  - Pruritus [Unknown]
